FAERS Safety Report 14303304 (Version 1)
Quarter: 2017Q4

REPORT INFORMATION
  Report Type: Spontaneous
  Country: US (occurrence: US)
  Receive Date: 20171219
  Receipt Date: 20171219
  Transmission Date: 20180321
  Serious: Yes (Other)
  Sender: FDA-Public Use
  Company Number: US-OTSUKA-18744136

PATIENT
  Age: 18 Year
  Sex: Female

DRUGS (1)
  1. ABILIFY [Suspect]
     Active Substance: ARIPIPRAZOLE
     Indication: BIPOLAR DISORDER
     Dosage: UNK
     Route: 048
     Dates: start: 200812

REACTIONS (9)
  - Hypersensitivity [Unknown]
  - Myalgia [Unknown]
  - Dysphagia [Unknown]
  - Seizure [Unknown]
  - Vision blurred [Unknown]
  - Swollen tongue [Unknown]
  - Visual impairment [Unknown]
  - Musculoskeletal stiffness [Unknown]
  - Dystonia [Unknown]

NARRATIVE: CASE EVENT DATE: 20090108
